FAERS Safety Report 6781432-3 (Version None)
Quarter: 2010Q2

REPORT INFORMATION
  Report Type: 
  Country: None (occurrence: None)
  Receive Date: 20100621
  Receipt Date: 20100616
  Transmission Date: 20101027
  Serious: Yes (Hospitalization)
  Sender: FDA-Public Use
  Company Number: DE-SANOFI-AVENTIS-200910582DE

PATIENT
  Age: 76 Year
  Sex: Male

DRUGS (7)
  1. AMARYL [Suspect]
     Route: 048
     Dates: start: 20071201, end: 20081126
  2. DELIX [Concomitant]
     Route: 048
  3. ASPIRIN [Concomitant]
     Indication: PROPHYLAXIS
     Route: 048
     Dates: end: 20081126
  4. METFORMIN [Concomitant]
     Route: 048
     Dates: start: 20071201, end: 20081126
  5. LOCOL [Concomitant]
     Route: 048
     Dates: end: 20081125
  6. METOPROLOL SUCCINATE [Concomitant]
     Dosage: DOSE AS USED: 1-0-1/2
     Route: 048
  7. BERLTHYROX [Concomitant]
     Indication: HYPOTHYROIDISM
     Route: 048

REACTIONS (4)
  - HYPOGLYCAEMIA [None]
  - RENAL FAILURE ACUTE [None]
  - RHABDOMYOLYSIS [None]
  - SYNCOPE [None]
